FAERS Safety Report 8786003 (Version 1)
Quarter: 2012Q4

REPORT INFORMATION
  Report Type: Report from Study
  Country: US (occurrence: US)
  Receive Date: 20120914
  Receipt Date: 20120914
  Transmission Date: 20130627
  Serious: No
  Sender: FDA-Public Use
  Company Number: US-VERTEX PHARMACEUTICAL INC.-AE-2012-011592

PATIENT
  Sex: Male
  Weight: 107.73 kg

DRUGS (9)
  1. INCIVEK [Suspect]
     Indication: HEPATITIS C
     Route: 048
  2. KLONOPIN [Concomitant]
  3. PHENERGAN SUP [Concomitant]
  4. PAXIL [Concomitant]
  5. AMLODIPINE [Concomitant]
  6. LISINOPRIL [Concomitant]
  7. METOPROLOL ER [Concomitant]
  8. FISH OIL CAPSULES [Concomitant]
  9. CORTISONE CREAM [Concomitant]

REACTIONS (4)
  - Influenza like illness [Unknown]
  - Anorectal discomfort [Unknown]
  - Nausea [Unknown]
  - Dysgeusia [Unknown]
